FAERS Safety Report 11909652 (Version 1)
Quarter: 2016Q1

REPORT INFORMATION
  Report Type: Spontaneous
  Country: US (occurrence: US)
  Receive Date: 20160112
  Receipt Date: 20160112
  Transmission Date: 20160526
  Serious: Yes (Hospitalization, Other)
  Sender: FDA-Public Use
  Company Number: US-PAR PHARMACEUTICAL COMPANIES-2016SCPR015071

PATIENT

DRUGS (16)
  1. DEXMEDETOMIDINE HYDROCHLORIDE. [Suspect]
     Active Substance: DEXMEDETOMIDINE HYDROCHLORIDE
     Indication: SEDATIVE THERAPY
     Dosage: 1 MCG/KG/HR
     Route: 042
  2. DEXMEDETOMIDINE HYDROCHLORIDE. [Suspect]
     Active Substance: DEXMEDETOMIDINE HYDROCHLORIDE
     Dosage: WEANED BY 0.1 MCG/KG/H EVERY 3 TO 4 HOURS OVER THE COURSE OF 2 TO 3 HOURS
     Route: 042
  3. MIDAZOLAM [Concomitant]
     Active Substance: MIDAZOLAM\MIDAZOLAM HYDROCHLORIDE
     Indication: AGITATION
     Dosage: 2 MG, EVERY 8 HOURS, AS NEEDED
     Route: 042
  4. FENTANYL. [Concomitant]
     Active Substance: FENTANYL
     Dosage: 2 MCG/KG/HR
     Route: 042
  5. MIDAZOLAM [Concomitant]
     Active Substance: MIDAZOLAM\MIDAZOLAM HYDROCHLORIDE
     Dosage: 0.2 MG/KG/HOUR
     Route: 042
  6. FENTANYL. [Concomitant]
     Active Substance: FENTANYL
     Indication: SEDATIVE THERAPY
     Dosage: 2 MCG/KG/HR
     Route: 042
  7. FENTANYL. [Concomitant]
     Active Substance: FENTANYL
     Indication: PAIN
     Dosage: 2.2 MCG/KG/HR
     Route: 042
  8. FENTANYL. [Concomitant]
     Active Substance: FENTANYL
     Dosage: 20 MCG, BOLUS, EVERY 2 HOURS
     Route: 042
  9. DEXMEDETOMIDINE HYDROCHLORIDE. [Suspect]
     Active Substance: DEXMEDETOMIDINE HYDROCHLORIDE
     Dosage: 0.7 MCG/KG/HR
     Route: 042
  10. DEXMEDETOMIDINE HYDROCHLORIDE. [Suspect]
     Active Substance: DEXMEDETOMIDINE HYDROCHLORIDE
     Dosage: 0.6 MCG/KG/HR
     Route: 042
  11. FENTANYL. [Concomitant]
     Active Substance: FENTANYL
     Dosage: 3 MCG/KG, /HR
     Route: 042
  12. DEXMEDETOMIDINE HYDROCHLORIDE. [Suspect]
     Active Substance: DEXMEDETOMIDINE HYDROCHLORIDE
     Dosage: 0.5 MCG/KG/HR
     Route: 042
  13. MIDAZOLAM [Concomitant]
     Active Substance: MIDAZOLAM\MIDAZOLAM HYDROCHLORIDE
     Indication: SEDATIVE THERAPY
     Dosage: 0.1 MG/KG/HOUR
     Route: 042
  14. MIDAZOLAM [Concomitant]
     Active Substance: MIDAZOLAM\MIDAZOLAM HYDROCHLORIDE
     Dosage: WEANED BY 0.05 MG/KG/H, EVERY 4 TO 6 HOURS
     Route: 065
  15. DOPAMINE [Concomitant]
     Active Substance: DOPAMINE\DOPAMINE HYDROCHLORIDE
     Indication: BLOOD PRESSURE MANAGEMENT
     Dosage: TITRATED BETWEEN 2 AND 20 MCG/KG/MIN, UNKNOWN
     Route: 042
  16. NOREPINEPHRINE [Concomitant]
     Active Substance: NOREPINEPHRINE\NOREPINEPHRINE BITARTRATE
     Indication: BLOOD PRESSURE MANAGEMENT
     Dosage: TITRATED BETWEEN 0.01 AND 0.3 MCG/KG/MIN, UNKNOWN
     Route: 042

REACTIONS (2)
  - Drug withdrawal syndrome [Unknown]
  - Posterior reversible encephalopathy syndrome [Recovering/Resolving]
